FAERS Safety Report 21216588 (Version 1)
Quarter: 2022Q3

REPORT INFORMATION
  Report Type: Report from Study
  Country: BR (occurrence: BR)
  Receive Date: 20220816
  Receipt Date: 20220816
  Transmission Date: 20221026
  Serious: Yes (Other)
  Sender: FDA-Public Use
  Company Number: BR-JNJFOC-20220823698

PATIENT
  Age: 1 Year
  Sex: Female
  Weight: 11 kg

DRUGS (1)
  1. REMICADE [Suspect]
     Active Substance: INFLIXIMAB
     Indication: Crohn^s disease
     Route: 041
     Dates: start: 20220316

REACTIONS (4)
  - Haematochezia [Recovering/Resolving]
  - Viral infection [Unknown]
  - Drug ineffective [Unknown]
  - Off label use [Unknown]
